FAERS Safety Report 10344835 (Version 1)
Quarter: 2014Q3

REPORT INFORMATION
  Report Type: Spontaneous
  Country: US (occurrence: None)
  Receive Date: 20140723
  Receipt Date: 20140723
  Transmission Date: 20150326
  Serious: No
  Sender: FDA-Public Use
  Company Number: CC14-0888

PATIENT
  Age: 45 Year
  Sex: Male

DRUGS (1)
  1. METRONIDAZOLE. [Suspect]
     Active Substance: METRONIDAZOLE
     Indication: ROSACEA
     Dosage: UNKNOWN DOSE APPLIED TOPICALLY
     Route: 061
     Dates: start: 201402, end: 20140608

REACTIONS (1)
  - Therapeutic response decreased [None]

NARRATIVE: CASE EVENT DATE: 2014
